FAERS Safety Report 4780374-2 (Version None)
Quarter: 2005Q3

REPORT INFORMATION
  Report Type: 
  Country: None (occurrence: None)
  Receive Date: 20050926
  Receipt Date: 20050926
  Transmission Date: 20060218
  Serious: Yes (Hospitalization)
  Sender: FDA-Public Use
  Company Number: None

PATIENT
  Age: 77 Year
  Sex: Female

DRUGS (2)
  1. WARFARIN    3MG [Suspect]
     Indication: ATRIAL FIBRILLATION
     Dosage: WARFARIN    3MG/4.5MG   PO
     Route: 048
  2. WARFARIN    3MG [Suspect]
     Indication: CARDIAC ASSISTANCE DEVICE USER
     Dosage: WARFARIN    3MG/4.5MG   PO
     Route: 048

REACTIONS (2)
  - ARTHRALGIA [None]
  - HAEMARTHROSIS [None]
